FAERS Safety Report 7106775-5 (Version None)
Quarter: 2010Q4

REPORT INFORMATION
  Report Type: 
  Country: None (occurrence: None)
  Receive Date: 20101116
  Receipt Date: 20101110
  Transmission Date: 20110411
  Serious: Yes (Other)
  Sender: FDA-Public Use
  Company Number: EC-MERCK-1011PER00003

PATIENT
  Age: 9 Year
  Sex: Male

DRUGS (4)
  1. SINGULAIR [Suspect]
     Indication: ASTHMA
     Route: 048
  2. SINGULAIR [Suspect]
     Route: 048
     Dates: end: 20100901
  3. SINGULAIR [Suspect]
     Indication: RHINITIS ALLERGIC
     Route: 048
  4. SINGULAIR [Suspect]
     Route: 048
     Dates: end: 20100901

REACTIONS (3)
  - AGGRESSION [None]
  - IRRITABILITY [None]
  - SUICIDAL IDEATION [None]
